FAERS Safety Report 5574711-9 (Version None)
Quarter: 2007Q4

REPORT INFORMATION
  Report Type: 
  Country: None (occurrence: None)
  Receive Date: 20071221
  Receipt Date: 20071221
  Transmission Date: 20080405
  Serious: No
  Sender: FDA-Public Use
  Company Number: None

PATIENT

DRUGS (1)
  1. BRIGHT EYES III N/A LIFE EXTENSION [Suspect]
     Indication: CATARACT
     Dosage: 1 TO 2 DROPS IN EACH TWICE DAILY OPHTHALMIC
     Route: 047
     Dates: start: 20070414, end: 20071118

REACTIONS (1)
  - DRUG INEFFECTIVE [None]
